FAERS Safety Report 8474620-1 (Version None)
Quarter: 2012Q2

REPORT INFORMATION
  Report Type: 
  Country: None (occurrence: None)
  Receive Date: 20120628
  Receipt Date: 20120622
  Transmission Date: 20120825
  Serious: Yes (Death, Hospitalization, Other)
  Sender: FDA-Public Use
  Company Number: ES-SP-2012-06347

PATIENT
  Age: 75 Year
  Sex: Male

DRUGS (1)
  1. IMMUCYST [Suspect]
     Indication: BLADDER CANCER
     Route: 043

REACTIONS (8)
  - PYREXIA [None]
  - BOVINE TUBERCULOSIS [None]
  - ASTHENIA [None]
  - ERYTHEMA [None]
  - WEIGHT DECREASED [None]
  - RETROPERITONEAL ABSCESS [None]
  - GROIN ABSCESS [None]
  - SKIN WARM [None]
